FAERS Safety Report 17553148 (Version 2)
Quarter: 2020Q1

REPORT INFORMATION
  Report Type: Report from Study
  Country: EE (occurrence: EE)
  Receive Date: 20200317
  Receipt Date: 20200323
  Transmission Date: 20200409
  Serious: Yes (Death, Life-Threatening)
  Sender: FDA-Public Use
  Company Number: EE-PFIZER INC-2020110168

PATIENT
  Age: 74 Year
  Sex: Male
  Weight: 77 kg

DRUGS (5)
  1. PANTOPRAZOLE [Concomitant]
     Active Substance: PANTOPRAZOLE
     Indication: GASTRITIS
     Dosage: 40 MG, 1X/DAY
     Route: 048
     Dates: start: 20191231
  2. ATORVASTATIN [Concomitant]
     Active Substance: ATORVASTATIN
     Indication: CARDIAC FAILURE
     Dosage: 40 MG, 1X/DAY
     Route: 048
     Dates: start: 20191231
  3. RAMIPRIL. [Concomitant]
     Active Substance: RAMIPRIL
     Indication: CARDIAC FAILURE
     Dosage: 2.5 MG, 2X/DAY
     Route: 048
     Dates: start: 20191230
  4. TIGECYCLINE. [Suspect]
     Active Substance: TIGECYCLINE
     Indication: SKIN BACTERIAL INFECTION
     Dosage: 50 MG, 2X/DAY
     Route: 042
     Dates: start: 20200113, end: 20200120
  5. BETALOC [METOPROLOL SUCCINATE] [Concomitant]
     Indication: CARDIAC FAILURE
     Dosage: 25 MG, 2X/DAY
     Route: 048
     Dates: start: 20191230

REACTIONS (1)
  - Death [Fatal]

NARRATIVE: CASE EVENT DATE: 20200216
